FAERS Safety Report 9482999 (Version 1)
Quarter: 2013Q3

REPORT INFORMATION
  Report Type: Spontaneous
  Country: US (occurrence: US)
  Receive Date: 20130828
  Receipt Date: 20130828
  Transmission Date: 20140515
  Serious: Yes (Other)
  Sender: FDA-Public Use
  Company Number: US-AMGEN-US068689

PATIENT
  Age: 65 Year
  Sex: Female

DRUGS (2)
  1. ENBREL [Suspect]
     Indication: RHEUMATOID ARTHRITIS
     Dosage: 25 MG, 2 TIMES/WK
     Route: 058
     Dates: start: 20030822, end: 20030912
  2. PREDNISONE [Concomitant]
     Dosage: UNK UNK, UNK
     Dates: start: 2001

REACTIONS (5)
  - Tremor [Unknown]
  - Paraesthesia [Unknown]
  - Dyskinesia [Unknown]
  - Diabetic retinopathy [Unknown]
  - Headache [Unknown]
